FAERS Safety Report 20511275 (Version 4)
Quarter: 2022Q2

REPORT INFORMATION
  Report Type: Report from Study
  Country: US (occurrence: US)
  Receive Date: 20220224
  Receipt Date: 20220603
  Transmission Date: 20220721
  Serious: Yes (Hospitalization)
  Sender: FDA-Public Use
  Company Number: US-NOVARTISTESTPH-NVSC2022US042455

PATIENT
  Sex: Female

DRUGS (1)
  1. PIQRAY [Suspect]
     Active Substance: ALPELISIB
     Indication: Product used for unknown indication
     Dosage: UNK
     Route: 048

REACTIONS (9)
  - Blood glucose increased [Unknown]
  - Candida infection [Unknown]
  - Reflux gastritis [Unknown]
  - Condition aggravated [Unknown]
  - Peripheral swelling [Unknown]
  - Nausea [Unknown]
  - Rash [Recovered/Resolved]
  - Vomiting [Unknown]
  - Asthenia [Unknown]
